FAERS Safety Report 7909759-X (Version None)
Quarter: 2011Q4

REPORT INFORMATION
  Report Type: 
  Country: None (occurrence: None)
  Receive Date: 20111111
  Receipt Date: 20110728
  Transmission Date: 20120403
  Serious: No
  Sender: FDA-Public Use
  Company Number: US-BAYER-2011-068256

PATIENT
  Age: 74 Year
  Sex: Female
  Weight: 73 kg

DRUGS (3)
  1. THYROID MEDICATION [Concomitant]
  2. ALEVE (CAPLET) [Suspect]
     Indication: BACK PAIN
     Dosage: UNK
     Route: 048
     Dates: start: 20110727
  3. ASPIRIN [Concomitant]

REACTIONS (1)
  - NO ADVERSE EVENT [None]
